FAERS Safety Report 8182608-3 (Version None)
Quarter: 2012Q1

REPORT INFORMATION
  Report Type: 
  Country: None (occurrence: None)
  Receive Date: 20120305
  Receipt Date: 20120222
  Transmission Date: 20120608
  Serious: Yes (Hospitalization, Other)
  Sender: FDA-Public Use
  Company Number: TW-BAYER-2012-017605

PATIENT
  Age: 33 Year
  Sex: Female

DRUGS (3)
  1. ALIMENTARY TRACT AND METABOLISM [Concomitant]
     Dosage: UNK
     Dates: start: 20120222
  2. MIRENA [Suspect]
     Indication: DYSMENORRHOEA
  3. MIRENA [Suspect]
     Indication: UTERINE LEIOMYOMA
     Dosage: 20 ?G/D, UNK
     Route: 015
     Dates: start: 20110801, end: 20120218

REACTIONS (8)
  - DECREASED APPETITE [None]
  - CHEST PAIN [None]
  - ASTHENIA [None]
  - PALLOR [None]
  - HYPERTENSION [None]
  - VAGINAL HAEMORRHAGE [None]
  - UNEVALUABLE EVENT [None]
  - DYSPNOEA [None]
